FAERS Safety Report 6672627-8 (Version None)
Quarter: 2010Q2

REPORT INFORMATION
  Report Type: 
  Country: None (occurrence: None)
  Receive Date: 20100406
  Receipt Date: 20100325
  Transmission Date: 20101027
  Serious: Yes (Hospitalization)
  Sender: FDA-Public Use
  Company Number: 233217J10USA

PATIENT
  Age: 15 Year
  Sex: Female

DRUGS (1)
  1. REBIF [Suspect]
     Indication: OFF LABEL USE
     Dosage: 44 MCG, 3 IN 1 WEEKS, SUBCUTANEOUS
     Route: 058
     Dates: start: 20080627

REACTIONS (3)
  - HEADACHE [None]
  - HYPOAESTHESIA [None]
  - INJECTION SITE ERYTHEMA [None]
